FAERS Safety Report 10414192 (Version 7)
Quarter: 2015Q2

REPORT INFORMATION
  Report Type: Spontaneous
  Country: US (occurrence: US)
  Receive Date: 20140827
  Receipt Date: 20150420
  Transmission Date: 20150821
  Serious: Yes (Death, Hospitalization, Disabling, Other)
  Sender: FDA-Public Use
  Company Number: US-009507513-1201USA01730

PATIENT
  Sex: Female
  Weight: 63.49 kg

DRUGS (3)
  1. FOSAMAX [Suspect]
     Active Substance: ALENDRONATE SODIUM
     Dosage: 70 MG, UNK
     Route: 048
     Dates: start: 20020211, end: 200802
  2. ALENDRONATE SODIUM. [Suspect]
     Active Substance: ALENDRONATE SODIUM
     Indication: OSTEOPOROSIS
     Dosage: 70 MG, UNK
     Route: 048
     Dates: start: 20080415, end: 20111122
  3. FOSAMAX [Suspect]
     Active Substance: ALENDRONATE SODIUM
     Indication: OSTEOPOROSIS
     Dosage: 10 MG, UNK
     Route: 048
     Dates: start: 1995, end: 20020107

REACTIONS (45)
  - Seizure [Unknown]
  - Cardiac disorder [Not Recovered/Not Resolved]
  - Contusion [Unknown]
  - Fracture nonunion [Unknown]
  - Hyperlipidaemia [Unknown]
  - Pulmonary hypertension [Unknown]
  - Fibrous histiocytoma [Unknown]
  - Coronary artery bypass [Unknown]
  - Coronary artery disease [Unknown]
  - Somnolence [Unknown]
  - Constipation [Unknown]
  - Chronic obstructive pulmonary disease [Unknown]
  - Iron deficiency anaemia [Unknown]
  - Death [Fatal]
  - Intramedullary rod insertion [Unknown]
  - Skin abrasion [Unknown]
  - Cardiac valve disease [Unknown]
  - Femur fracture [Unknown]
  - Osteoarthritis [Unknown]
  - Shoulder operation [Unknown]
  - Cardiac operation [Unknown]
  - Balance disorder [Unknown]
  - Contusion [Unknown]
  - Sedation [Unknown]
  - Oedema peripheral [Unknown]
  - Cerebrovascular accident [Unknown]
  - Dyslipidaemia [Unknown]
  - Anaemia [Unknown]
  - Malignant melanoma [Unknown]
  - Humerus fracture [Unknown]
  - Osteoarthritis [Unknown]
  - Atrial fibrillation [Unknown]
  - Drug ineffective [Unknown]
  - Hypothyroidism [Unknown]
  - Plasma cell myeloma [Unknown]
  - Drug ineffective [Unknown]
  - Induration [Unknown]
  - Myocardial infarction [Unknown]
  - Cardiac operation [Unknown]
  - Heart valve operation [Unknown]
  - Arthritis [Unknown]
  - Foot deformity [Unknown]
  - Bradycardia [Unknown]
  - Fall [Unknown]
  - Arthralgia [Unknown]

NARRATIVE: CASE EVENT DATE: 1996
